FAERS Safety Report 24137073 (Version 1)
Quarter: 2024Q3

REPORT INFORMATION
  Report Type: Spontaneous
  Country: AU (occurrence: AU)
  Receive Date: 20240725
  Receipt Date: 20240725
  Transmission Date: 20241016
  Serious: Yes (Other)
  Sender: TEVA
  Company Number: AU-TEVA-VS-3222833

PATIENT
  Age: 47 Year
  Sex: Female

DRUGS (1)
  1. FINGOLIMOD [Suspect]
     Active Substance: FINGOLIMOD
     Route: 065

REACTIONS (1)
  - Diffuse large B-cell lymphoma [Unknown]
